FAERS Safety Report 7774506-1 (Version None)
Quarter: 2011Q3

REPORT INFORMATION
  Report Type: 
  Country: None (occurrence: None)
  Receive Date: 20110923
  Receipt Date: 20110921
  Transmission Date: 20111222
  Serious: No
  Sender: FDA-Public Use
  Company Number: US-PFIZER INC-2011225606

PATIENT
  Sex: Female
  Weight: 58.05 kg

DRUGS (1)
  1. MECLIZINE HCL [Suspect]
     Indication: VERTIGO
     Dosage: UNK, DAILY

REACTIONS (1)
  - DIZZINESS [None]
